FAERS Safety Report 6710646-3 (Version None)
Quarter: 2010Q2

REPORT INFORMATION
  Report Type: 
  Country: None (occurrence: None)
  Receive Date: 20100504
  Receipt Date: 20100504
  Transmission Date: 20101027
  Serious: Yes (Other)
  Sender: FDA-Public Use
  Company Number: None

PATIENT
  Age: 18 Month
  Sex: Female
  Weight: 10.4327 kg

DRUGS (2)
  1. TYLENOL INFANT 80 MG PER 0.8ML MCNEIL [Suspect]
     Indication: PYREXIA
     Dosage: 1.2ML (120MG) EVERY 4 HRS ORAL
     Route: 048
     Dates: start: 20100227
  2. TYLENOL INFANT 80 MG PER 0.8ML MCNEIL [Suspect]
     Indication: PYREXIA
     Dosage: 1.2ML (120MG) EVERY 4 HRS ORAL
     Route: 048
     Dates: start: 20100228

REACTIONS (3)
  - CONVULSION [None]
  - DRUG INEFFECTIVE [None]
  - PRODUCT QUALITY ISSUE [None]
